FAERS Safety Report 11400650 (Version 5)
Quarter: 2016Q3

REPORT INFORMATION
  Report Type: Spontaneous
  Country: US (occurrence: US)
  Receive Date: 20150820
  Receipt Date: 20160721
  Transmission Date: 20161109
  Serious: Yes (Other)
  Sender: FDA-Public Use
  Company Number: US-PFIZER INC-2015277580

PATIENT
  Age: 55 Year
  Sex: Female
  Weight: 94 kg

DRUGS (3)
  1. XELJANZ [Suspect]
     Active Substance: TOFACITINIB CITRATE
     Dosage: 1 DF, 2X/DAY (1 TABLET IN THE MORNING AND 1 IN THE EVENING)
  2. XELJANZ [Suspect]
     Active Substance: TOFACITINIB CITRATE
     Dosage: 2 DF, 1X/DAY
  3. XELJANZ [Suspect]
     Active Substance: TOFACITINIB CITRATE
     Indication: RHEUMATOID ARTHRITIS
     Dosage: 5 MG, 2X/DAY
     Route: 048
     Dates: start: 201507

REACTIONS (8)
  - Oropharyngeal pain [Recovered/Resolved]
  - Condition aggravated [Unknown]
  - Hypersensitivity [Unknown]
  - Rhinorrhoea [Recovered/Resolved]
  - Headache [Recovered/Resolved]
  - Sinus disorder [Unknown]
  - Diverticulitis [Unknown]
  - Cough [Not Recovered/Not Resolved]
